FAERS Safety Report 7304758-3 (Version None)
Quarter: 2011Q1

REPORT INFORMATION
  Report Type: 
  Country: None (occurrence: None)
  Receive Date: 20110222
  Receipt Date: 20110214
  Transmission Date: 20110831
  Serious: No
  Sender: FDA-Public Use
  Company Number: US-PFIZER INC-2011033075

PATIENT
  Sex: Female
  Weight: 63.946 kg

DRUGS (4)
  1. LYRICA [Suspect]
     Indication: NERVE INJURY
     Dosage: 150MG AM, 225MG PM
  2. NEXIUM [Concomitant]
     Indication: DYSPHAGIA
     Dosage: UNK
  3. LYRICA [Suspect]
     Indication: NEURALGIA
     Dosage: 150 MG (75MGX2), 2X/DAY
     Route: 048
     Dates: start: 20100101
  4. FISH OIL [Concomitant]
     Dosage: UNK

REACTIONS (3)
  - DRUG INEFFECTIVE [None]
  - FEELING ABNORMAL [None]
  - WEIGHT INCREASED [None]
